FAERS Safety Report 21877175 (Version 3)
Quarter: 2023Q1

REPORT INFORMATION
  Report Type: Report from Study
  Country: US (occurrence: US)
  Receive Date: 20230118
  Receipt Date: 20230302
  Transmission Date: 20230418
  Serious: No
  Sender: FDA-Public Use
  Company Number: US-002147023-NVSC2023US010897

PATIENT
  Age: 71 Year
  Sex: Female

DRUGS (1)
  1. XIIDRA [Suspect]
     Active Substance: LIFITEGRAST
     Indication: Product used for unknown indication
     Dosage: UNK (5 % TWO TIMES)
     Route: 047
     Dates: start: 20210801, end: 202211

REACTIONS (4)
  - Bronchial secretion retention [Unknown]
  - Ageusia [Unknown]
  - Eye swelling [Unknown]
  - Drug ineffective [Recovered/Resolved]

NARRATIVE: CASE EVENT DATE: 20220301
